FAERS Safety Report 20840529 (Version 1)
Quarter: 2022Q2

REPORT INFORMATION
  Report Type: Spontaneous
  Country: US (occurrence: US)
  Receive Date: 20220517
  Receipt Date: 20220517
  Transmission Date: 20220721
  Serious: Yes (Other)
  Sender: FDA-Public Use
  Company Number: US-INCYTE CORPORATION-2022IN004699

PATIENT

DRUGS (14)
  1. JAKAFI [Suspect]
     Active Substance: RUXOLITINIB
     Indication: Essential thrombocythaemia
     Dosage: 10 MILLIGRAM, BID
     Route: 048
     Dates: start: 20210305
  2. ARMOUR THYROID [Concomitant]
     Active Substance: THYROID, PORCINE
     Indication: Product used for unknown indication
     Route: 065
  3. ASCORBIC ACID [Concomitant]
     Active Substance: ASCORBIC ACID
     Indication: Product used for unknown indication
     Dosage: 1000 MILLIGRAM
     Route: 065
  4. ASPIRIN [Concomitant]
     Active Substance: ASPIRIN
     Indication: Product used for unknown indication
     Route: 065
  5. CALCIUM [Concomitant]
     Active Substance: CALCIUM
     Indication: Product used for unknown indication
     Dosage: 600 MILLIGRAM
     Route: 065
  6. CLOBETASOL [Concomitant]
     Active Substance: CLOBETASOL
     Indication: Product used for unknown indication
     Dosage: 0.5 PERCENT
     Route: 065
  7. ESTRACE [Concomitant]
     Active Substance: ESTRADIOL
     Indication: Product used for unknown indication
     Dosage: 0.01 PERCENT
     Route: 065
  8. GLUTAMINE [LEVOGLUTAMIDE] [Concomitant]
     Indication: Product used for unknown indication
     Dosage: 500 MILLIGRAM
     Route: 065
  9. HYDREA [Concomitant]
     Active Substance: HYDROXYUREA
     Indication: Product used for unknown indication
     Dosage: 500 MILLIGRAM
     Route: 065
  10. KETOCONAZOLE [Concomitant]
     Active Substance: KETOCONAZOLE
     Indication: Product used for unknown indication
     Route: 065
  11. LYSINE [Concomitant]
     Active Substance: LYSINE
     Indication: Product used for unknown indication
     Dosage: 1000 MILLIGRAM
     Route: 065
  12. DIETARY SUPPLEMENT\HERBALS\MILK THISTLE [Concomitant]
     Active Substance: DIETARY SUPPLEMENT\HERBALS\MILK THISTLE
     Indication: Product used for unknown indication
     Dosage: 175 MILLIGRAM
     Route: 065
  13. OMEPRAZOLE [Concomitant]
     Active Substance: OMEPRAZOLE
     Indication: Product used for unknown indication
     Route: 065
  14. PRED FORTE [Concomitant]
     Active Substance: PREDNISOLONE ACETATE
     Indication: Product used for unknown indication
     Dosage: 1 PERCENT OP
     Route: 065

REACTIONS (5)
  - Myelofibrosis [Not Recovered/Not Resolved]
  - Fatigue [Not Recovered/Not Resolved]
  - Liver disorder [Not Recovered/Not Resolved]
  - Red blood cell count decreased [Not Recovered/Not Resolved]
  - Off label use [Unknown]

NARRATIVE: CASE EVENT DATE: 20210305
